FAERS Safety Report 6037269-6 (Version None)
Quarter: 2009Q1

REPORT INFORMATION
  Report Type: 
  Country: None (occurrence: None)
  Receive Date: 20090114
  Receipt Date: 20090109
  Transmission Date: 20090719
  Serious: Yes (Other)
  Sender: FDA-Public Use
  Company Number: A0763449A

PATIENT
  Age: 81 Year
  Sex: Male
  Weight: 73 kg

DRUGS (7)
  1. DIGOXIN [Suspect]
     Indication: CARDIAC DISORDER
     Dosage: .25MG PER DAY
     Dates: start: 20081201
  2. SELOZOK [Concomitant]
     Dates: start: 20081201
  3. SIMVASTATIN [Concomitant]
     Dates: start: 20081201
  4. LOSARTAN POTASSIUM [Concomitant]
     Dates: start: 20081201
  5. FUROSEMIDE [Concomitant]
  6. POTASSIUM CHLORIDE [Concomitant]
  7. LEVOTHYROXINE SODIUM [Concomitant]

REACTIONS (1)
  - DIABETES MELLITUS [None]
